FAERS Safety Report 19041178 (Version 1)
Quarter: 2021Q1

REPORT INFORMATION
  Report Type: Spontaneous
  Country: US (occurrence: US)
  Receive Date: 20210323
  Receipt Date: 20210323
  Transmission Date: 20210420
  Serious: Yes (Other)
  Sender: FDA-Public Use
  Company Number: US-DRREDDYS-USA/USA/21/0133170

PATIENT
  Age: 6 Year
  Sex: Female

DRUGS (10)
  1. DOXORUBICIN HYDROCHLORIDE LIPOSOME INJECTION 20 MG/10 ML (2 MG/ML) AND [Suspect]
     Active Substance: DOXORUBICIN HYDROCHLORIDE
     Indication: NEPHROBLASTOMA
  2. ETOPOSIDE. [Concomitant]
     Active Substance: ETOPOSIDE
     Indication: METASTASIS
  3. ETOPOSIDE. [Concomitant]
     Active Substance: ETOPOSIDE
     Indication: NEPHROBLASTOMA
  4. VINCRISTINE [Suspect]
     Active Substance: VINCRISTINE
     Indication: METASTASIS
  5. VINCRISTINE [Suspect]
     Active Substance: VINCRISTINE
     Indication: NEPHROBLASTOMA
  6. DACTINOMYCIN [Suspect]
     Active Substance: DACTINOMYCIN
     Indication: METASTASIS
  7. CYCLOPHOSPHAMIDE. [Concomitant]
     Active Substance: CYCLOPHOSPHAMIDE
     Indication: NEPHROBLASTOMA
  8. CYCLOPHOSPHAMIDE. [Concomitant]
     Active Substance: CYCLOPHOSPHAMIDE
     Indication: METASTASIS
  9. DACTINOMYCIN [Suspect]
     Active Substance: DACTINOMYCIN
     Indication: NEPHROBLASTOMA
  10. DOXORUBICIN HYDROCHLORIDE LIPOSOME INJECTION 20 MG/10 ML (2 MG/ML) AND [Suspect]
     Active Substance: DOXORUBICIN HYDROCHLORIDE
     Indication: METASTASIS

REACTIONS (9)
  - Pleural effusion [Unknown]
  - Renal impairment [Recovering/Resolving]
  - Thrombotic microangiopathy [Recovering/Resolving]
  - Ascites [Unknown]
  - Hypervolaemia [Unknown]
  - Pericardial effusion [Unknown]
  - Hypertensive urgency [Unknown]
  - Atypical haemolytic uraemic syndrome [Recovering/Resolving]
  - Haematuria [Unknown]
